FAERS Safety Report 16065384 (Version 2)
Quarter: 2019Q2

REPORT INFORMATION
  Report Type: Spontaneous
  Country: JP (occurrence: JP)
  Receive Date: 20190313
  Receipt Date: 20190603
  Transmission Date: 20190711
  Serious: Yes (Hospitalization, Other)
  Sender: FDA-Public Use
  Company Number: JP-GLAXOSMITHKLINE-JP2019JPN043997

PATIENT
  Age: 86 Year
  Sex: Male
  Weight: 50 kg

DRUGS (5)
  1. EPINASTINE. [Concomitant]
     Active Substance: EPINASTINE HYDROCHLORIDE
     Dosage: 10 MG, QD AT BEDTIME
     Route: 048
     Dates: start: 20190223
  2. ZOVIRAX [Suspect]
     Active Substance: ACYCLOVIR
     Indication: HERPES ZOSTER
     Dosage: 720 MG, QID
     Route: 048
     Dates: start: 20190223, end: 20190225
  3. VALACICLOVIR HYDROCHLORIDE [Suspect]
     Active Substance: VALACYCLOVIR HYDROCHLORIDE
     Indication: HERPES ZOSTER
     Dosage: 1000 MG, TID
     Route: 048
     Dates: start: 20190301, end: 20190303
  4. VALACICLOVIR [Suspect]
     Active Substance: VALACYCLOVIR HYDROCHLORIDE
     Indication: HERPES ZOSTER
     Dosage: 1000 MG, TID
     Route: 048
     Dates: start: 20190301, end: 20190303
  5. BEPOTASTINE BESILATE [Concomitant]
     Active Substance: BEPOTASTINE BESILATE
     Dosage: 10 MG, BID IN THE MORNING AND EVENING
     Route: 048
     Dates: start: 20190223

REACTIONS (12)
  - Toxic encephalopathy [Recovering/Resolving]
  - Clostridium difficile infection [Recovered/Resolved]
  - Subdural haematoma [Unknown]
  - Acute kidney injury [Recovered/Resolved]
  - Product use issue [Unknown]
  - Altered state of consciousness [Recovering/Resolving]
  - Diarrhoea [Recovering/Resolving]
  - Refeeding syndrome [Recovered/Resolved]
  - Wernicke^s encephalopathy [Recovering/Resolving]
  - Meningitis bacterial [Recovering/Resolving]
  - Anaemia macrocytic [Recovering/Resolving]
  - Renal impairment [Recovered/Resolved]

NARRATIVE: CASE EVENT DATE: 2019
